APPROVED DRUG PRODUCT: MAGNESIUM SULFATE
Active Ingredient: MAGNESIUM SULFATE
Strength: 25GM/50ML (500MG/ML)
Dosage Form/Route: SOLUTION;INTRAMUSCULAR, INTRAVENOUS
Application: A219777 | Product #004 | TE Code: AP
Applicant: ASPIRO PHARMA LTD
Approved: May 28, 2025 | RLD: No | RS: No | Type: RX

EXCLUSIVITY:
Code: CGT | Date: Feb 1, 2026